FAERS Safety Report 17911863 (Version 3)
Quarter: 2020Q3

REPORT INFORMATION
  Report Type: Spontaneous
  Country: GB (occurrence: GB)
  Receive Date: 20200618
  Receipt Date: 20200820
  Transmission Date: 20201103
  Serious: Yes (Other)
  Sender: FDA-Public Use
  Company Number: GB-NEUROCRINE BIOSCIENCES INC.-2020NBI01978

PATIENT
  Age: 52 Year
  Sex: Male

DRUGS (13)
  1. CHOLECALCIFEROL [Concomitant]
     Active Substance: CHOLECALCIFEROL
     Route: 065
  2. CO?BENELDOPA [Concomitant]
     Active Substance: BENSERAZIDE HYDROCHLORIDE\LEVODOPA
     Dosage: 25/100 MG DISPERSIBLE TABLETS AT A DOSE OF TWO TABLETS TAKEN SIX TIMES A DAY AT 07 HOUR, 10 HOUR, 15
  3. SELEGILINE [Concomitant]
     Active Substance: SELEGILINE
  4. SINEMET [Concomitant]
     Active Substance: CARBIDOPA\LEVODOPA
     Dosage: 25/100 MG AT NIGHT
  5. LAXIDO [Concomitant]
     Active Substance: POLYETHYLENE GLYCOL 3350\POTASSIUM CHLORIDE\SODIUM BICARBONATE\SODIUM CHLORIDE
     Dosage: SACHETS, UNKNOWN
     Route: 065
  6. MIRTAZAPINE. [Concomitant]
     Active Substance: MIRTAZAPINE
     Dosage: ONE TAKEN AT NIGHT
     Route: 065
  7. LANSOPRAZOLE. [Concomitant]
     Active Substance: LANSOPRAZOLE
     Route: 065
  8. ALENDRONIC ACID [Concomitant]
     Active Substance: ALENDRONIC ACID
     Route: 065
  9. OPICAPONE [Suspect]
     Active Substance: OPICAPONE
     Indication: PARKINSON^S DISEASE
     Dosage: UNKNOWN
     Route: 065
     Dates: start: 20200528, end: 20200605
  10. REQUIP XL [Concomitant]
     Active Substance: ROPINIROLE HYDROCHLORIDE
     Dosage: 10 MG (8 MG PLUS 2 MG) ONCE DAILY AND HALF
  11. LACTULOSE. [Concomitant]
     Active Substance: LACTULOSE
     Dosage: UNKNOWN
     Route: 065
  12. PRUCALOPRIDE [Concomitant]
     Active Substance: PRUCALOPRIDE
  13. GAVISCON ADVANCE [Concomitant]
     Active Substance: POTASSIUM BICARBONATE\SODIUM ALGINATE

REACTIONS (8)
  - Dehydration [Recovered/Resolved]
  - Agitation [Recovered/Resolved]
  - Fall [Recovered/Resolved]
  - Therapy cessation [Unknown]
  - Bradycardia [Recovered/Resolved]
  - Pain [Recovered/Resolved]
  - Constipation [Not Recovered/Not Resolved]
  - Muscle spasms [Recovered/Resolved]

NARRATIVE: CASE EVENT DATE: 2020
